FAERS Safety Report 16125198 (Version 1)
Quarter: 2019Q1

REPORT INFORMATION
  Report Type: Report from Study
  Country: IL (occurrence: IL)
  Receive Date: 20190327
  Receipt Date: 20190327
  Transmission Date: 20190418
  Serious: Yes (Other)
  Sender: FDA-Public Use
  Company Number: PHHY2019IL065111

PATIENT
  Age: 67 Year
  Sex: Female

DRUGS (4)
  1. SIGNIFOR LAR [Suspect]
     Active Substance: PASIREOTIDE
     Dosage: 60 MG, Q4W
     Route: 030
     Dates: start: 20190320
  2. SIGNIFOR LAR [Suspect]
     Active Substance: PASIREOTIDE
     Dosage: 60 MG, Q4W
     Route: 030
     Dates: start: 20190120
  3. SIGNIFOR LAR [Suspect]
     Active Substance: PASIREOTIDE
     Dosage: 60 MG, Q4W
     Route: 030
     Dates: start: 20171217
  4. SIGNIFOR LAR [Suspect]
     Active Substance: PASIREOTIDE
     Dosage: 60 MG, Q4W
     Route: 030
     Dates: start: 20190217

REACTIONS (2)
  - Abdominal pain [Not Recovered/Not Resolved]
  - Pneumonia [Not Recovered/Not Resolved]

NARRATIVE: CASE EVENT DATE: 20190317
